FAERS Safety Report 4759549-4 (Version None)
Quarter: 2005Q3

REPORT INFORMATION
  Report Type: 
  Country: None (occurrence: None)
  Receive Date: 20050901
  Receipt Date: 20050830
  Transmission Date: 20060218
  Serious: Yes (Other)
  Sender: FDA-Public Use
  Company Number: US-MERCK-0508USA04881

PATIENT
  Age: 59 Year
  Sex: Female

DRUGS (4)
  1. FOSAMAX [Suspect]
     Indication: OSTEOPOROSIS
     Route: 048
     Dates: start: 19990101
  2. LEVOXYL [Concomitant]
     Route: 065
  3. NITROFURANTOIN [Concomitant]
     Route: 065
  4. AMITRIPTYLIN [Concomitant]
     Route: 065

REACTIONS (1)
  - PANCREATITIS [None]
